FAERS Safety Report 22323537 (Version 1)
Quarter: 2023Q2

REPORT INFORMATION
  Report Type: Spontaneous
  Country: JP (occurrence: JP)
  Receive Date: 20230516
  Receipt Date: 20230516
  Transmission Date: 20230721
  Serious: Yes (Other)
  Sender: FDA-Public Use
  Company Number: JP-MLMSERVICE-20230428-4240176-1

PATIENT
  Age: 8 Decade
  Sex: Male

DRUGS (15)
  1. ATORVASTATIN [Suspect]
     Active Substance: ATORVASTATIN
     Indication: Hypertriglyceridaemia
     Dates: start: 2018
  2. PEMAFIBRATE [Suspect]
     Active Substance: PEMAFIBRATE
     Indication: Hypertriglyceridaemia
     Dates: start: 2019
  3. METFORMIN [Concomitant]
     Active Substance: METFORMIN HYDROCHLORIDE
     Indication: Type 2 diabetes mellitus
  4. VOGLIBOSE [Concomitant]
     Active Substance: VOGLIBOSE
     Indication: Type 2 diabetes mellitus
  5. CLOPIDOGREL [Concomitant]
     Active Substance: CLOPIDOGREL BISULFATE
     Indication: Antiplatelet therapy
  6. EZETIMIBE [Concomitant]
     Active Substance: EZETIMIBE
     Indication: Hyperlipidaemia
     Dates: start: 2018
  7. SIROLIMUS [Concomitant]
     Active Substance: SIROLIMUS
     Indication: Coronary artery stenosis
     Dosage: 4.0 MM X 28 MM, 2.25 MM X 21 MM
     Dates: start: 20181003
  8. ASPIRIN [Concomitant]
     Active Substance: ASPIRIN
     Indication: Coronary artery stenosis
     Dates: start: 2018
  9. BISOPROLOL [Concomitant]
     Active Substance: BISOPROLOL
     Indication: Coronary artery stenosis
  10. PRASUGREL [Concomitant]
     Active Substance: PRASUGREL
     Indication: Antiplatelet therapy
     Dates: start: 2018
  11. LINAGLIPTIN [Concomitant]
     Active Substance: LINAGLIPTIN
     Indication: Type 2 diabetes mellitus
  12. ENALAPRIL [Concomitant]
     Active Substance: ENALAPRIL
     Indication: Coronary artery stenosis
  13. ATORVASTATIN [Suspect]
     Active Substance: ATORVASTATIN
     Indication: Hypertriglyceridaemia
     Dates: start: 20160205, end: 2018
  14. ASPIRIN [Concomitant]
     Active Substance: ASPIRIN
     Indication: Antiplatelet therapy
     Dates: start: 2018
  15. PRASUGREL [Concomitant]
     Active Substance: PRASUGREL
     Indication: Coronary artery stenosis
     Dates: start: 2018

REACTIONS (1)
  - Arteriosclerosis [Unknown]
